FAERS Safety Report 6994655-5 (Version None)
Quarter: 2010Q3

REPORT INFORMATION
  Report Type: 
  Country: None (occurrence: None)
  Receive Date: 20100914
  Receipt Date: 20100914
  Transmission Date: 20110219
  Serious: Yes (Other)
  Sender: FDA-Public Use
  Company Number: None

PATIENT
  Sex: Female
  Weight: 78.7 kg

DRUGS (1)
  1. ANASTROZOLE 1 MG [Suspect]
     Indication: BREAST CANCER
     Dosage: ANASTROZOLE 1 MG P.O.
     Route: 048
     Dates: start: 20100801, end: 20100801

REACTIONS (4)
  - DIARRHOEA [None]
  - NAUSEA [None]
  - PRODUCT SUBSTITUTION ISSUE [None]
  - VOMITING [None]
